FAERS Safety Report 14112223 (Version 1)
Quarter: 2017Q4

REPORT INFORMATION
  Report Type: Spontaneous
  Country: US (occurrence: US)
  Receive Date: 20171020
  Receipt Date: 20171020
  Transmission Date: 20180321
  Serious: Yes (Hospitalization, Other)
  Sender: FDA-Public Use
  Company Number: US-BEH-2017084442

PATIENT
  Age: 47 Year
  Sex: Female
  Weight: 75.28 kg

DRUGS (18)
  1. CARVEDILOL. [Concomitant]
     Active Substance: CARVEDILOL
  2. CLONAZEPAM. [Concomitant]
     Active Substance: CLONAZEPAM
  3. DURAGESIC [Concomitant]
     Active Substance: FENTANYL
  4. FERROUS SULFATE. [Concomitant]
     Active Substance: FERROUS SULFATE
  5. HAEMATE P [Suspect]
     Active Substance: ANTIHEMOPHILIC FACTOR HUMAN
     Indication: VON WILLEBRAND^S DISEASE
     Dosage: 4400 IU,3XWEEK
     Route: 042
  6. LISINOPRIL. [Concomitant]
     Active Substance: LISINOPRIL
  7. REQUIP [Concomitant]
     Active Substance: ROPINIROLE HYDROCHLORIDE
  8. LONASEN [Concomitant]
     Active Substance: BLONANSERIN
  9. SUCRALFATE. [Concomitant]
     Active Substance: SUCRALFATE
  10. NEURONTIN [Concomitant]
     Active Substance: GABAPENTIN
  11. LEVAQUIN [Concomitant]
     Active Substance: LEVOFLOXACIN
  12. ZOFRAN [Concomitant]
     Active Substance: ONDANSETRON HYDROCHLORIDE
  13. PREMARIN [Concomitant]
     Active Substance: ESTROGENS, CONJUGATED
  14. HYDROMORPHONE [Concomitant]
     Active Substance: HYDROMORPHONE
  15. HAEMATE P [Suspect]
     Active Substance: ANTIHEMOPHILIC FACTOR HUMAN
     Dosage: UNK
     Route: 042
  16. HAEMATE P [Suspect]
     Active Substance: ANTIHEMOPHILIC FACTOR HUMAN
     Dosage: UNK
     Route: 042
  17. SPIRONOLACTONE. [Concomitant]
     Active Substance: SPIRONOLACTONE
  18. PROVENTIL [Concomitant]
     Active Substance: ALBUTEROL

REACTIONS (2)
  - Pulmonary haemorrhage [Unknown]
  - Road traffic accident [Unknown]
